FAERS Safety Report 4445717-8 (Version None)
Quarter: 2004Q3

REPORT INFORMATION
  Report Type: 
  Country: None (occurrence: None)
  Receive Date: 20040903
  Receipt Date: 20040823
  Transmission Date: 20050211
  Serious: Yes (Death, Hospitalization)
  Sender: FDA-Public Use
  Company Number: 2004-BP-00058NB

PATIENT
  Age: 63 Year
  Sex: Female

DRUGS (5)
  1. MOBIC [Suspect]
     Indication: RHEUMATOID ARTHRITIS
     Dosage: 10 MG PO
     Route: 048
     Dates: start: 20020918
  2. PREDNISOLONE [Suspect]
     Indication: RHEUMATOID ARTHRITIS
     Dosage: PO
     Route: 048
     Dates: start: 20020213
  3. BREDININ (MIZORIBINE) (TA) [Suspect]
     Indication: RHEUMATOID ARTHRITIS
     Dosage: PO
     Route: 048
     Dates: start: 20020918, end: 20021119
  4. MUCOSTA (REBAMIPIDE) [Suspect]
     Indication: PROPHYLAXIS AGAINST GASTROINTESTINAL ULCER
     Dosage: PO
     Route: 048
     Dates: start: 20020918, end: 20021119
  5. SOSEGON (PENTAZOCINE) (AM) [Suspect]
     Indication: ARTHRALGIA
     Dosage: IM
     Route: 030
     Dates: start: 20021120

REACTIONS (4)
  - ARTHRALGIA [None]
  - CONDITION AGGRAVATED [None]
  - PYREXIA [None]
  - SUDDEN DEATH [None]
